FAERS Safety Report 23148369 (Version 1)
Quarter: 2023Q4

REPORT INFORMATION
  Report Type: Report from Study
  Country: KE (occurrence: KE)
  Receive Date: 20231106
  Receipt Date: 20231106
  Transmission Date: 20240109
  Serious: Yes (Death, Hospitalization, Other)
  Sender: FDA-Public Use
  Company Number: KE-GILEAD-2023-0649597

PATIENT
  Age: 63 Year
  Sex: Female

DRUGS (9)
  1. BICTEGRAVIR\EMTRICITABINE\TENOFOVIR ALAFENAMIDE [Suspect]
     Active Substance: BICTEGRAVIR\EMTRICITABINE\TENOFOVIR ALAFENAMIDE
     Indication: Product used for unknown indication
     Dosage: 275 MG, QD
     Route: 065
     Dates: start: 20220318
  2. CARVEDILOL [Concomitant]
     Active Substance: CARVEDILOL
     Dosage: 12.5 MG, QD
     Route: 065
     Dates: start: 20190103
  3. DIGOXIN [Concomitant]
     Active Substance: DIGOXIN
     Dosage: 2.5 MG, QD
     Route: 065
     Dates: start: 20190103
  4. CANRENOATE POTASSIUM [Concomitant]
     Active Substance: CANRENOATE POTASSIUM
     Dosage: 25 MG, QD
     Route: 065
     Dates: start: 20190103
  5. WARFARIN [Concomitant]
     Active Substance: WARFARIN
     Dosage: 5 MG, QD
     Route: 065
     Dates: start: 20190103
  6. GLUCOMET [GLIMEPIRIDE] [Concomitant]
     Dosage: 500 MG, BID
     Route: 065
     Dates: start: 20190103
  7. LASIX [Concomitant]
     Active Substance: FUROSEMIDE
     Dosage: 40 MG, BID
     Route: 065
     Dates: start: 20190103
  8. GLIMEPIRIDE [Concomitant]
     Active Substance: GLIMEPIRIDE
     Dosage: 2 MG, BID
     Route: 065
     Dates: start: 20190103
  9. ENALAPRIL [Concomitant]
     Active Substance: ENALAPRIL
     Dosage: 10 MG, BID
     Route: 065
     Dates: start: 20190103

REACTIONS (4)
  - Cardiac failure congestive [Fatal]
  - Dyspnoea [Unknown]
  - Peripheral swelling [Unknown]
  - Loss of consciousness [Unknown]

NARRATIVE: CASE EVENT DATE: 20230506
